FAERS Safety Report 9319727 (Version 1)
Quarter: 2013Q2

REPORT INFORMATION
  Report Type: Spontaneous
  Country: US (occurrence: None)
  Receive Date: 20130529
  Receipt Date: 20130529
  Transmission Date: 20140414
  Serious: No
  Sender: FDA-Public Use
  Company Number: None

PATIENT
  Age: 39 Year
  Sex: Female
  Weight: 81.65 kg

DRUGS (1)
  1. ORTHO-NOVUM [Suspect]
     Dates: start: 20080701, end: 20090701

REACTIONS (2)
  - Haemorrhage [None]
  - Infertility female [None]
